FAERS Safety Report 8201935-4 (Version None)
Quarter: 2012Q1

REPORT INFORMATION
  Report Type: 
  Country: None (occurrence: None)
  Receive Date: 20120312
  Receipt Date: 20120302
  Transmission Date: 20120608
  Serious: Yes (Other)
  Sender: FDA-Public Use
  Company Number: CN-PFIZER INC-2012052361

PATIENT
  Sex: Female

DRUGS (3)
  1. PACLITAXEL [Suspect]
     Indication: CERVIX CARCINOMA
     Dosage: 150 MG/M2, UNK
     Route: 042
  2. CARBOPLATIN [Suspect]
     Indication: CERVIX CARCINOMA
     Dosage: UNK
     Route: 042
  3. CISPLATIN [Suspect]
     Indication: CERVIX CARCINOMA
     Dosage: 20 MG, UNK

REACTIONS (1)
  - LIVER INJURY [None]
